FAERS Safety Report 6491665-1 (Version None)
Quarter: 2009Q4

REPORT INFORMATION
  Report Type: 
  Country: None (occurrence: None)
  Receive Date: 20091211
  Receipt Date: 20091204
  Transmission Date: 20100525
  Serious: Yes (Life-Threatening, Hospitalization)
  Sender: FDA-Public Use
  Company Number: FR-MERCK-0912FRA00008

PATIENT
  Age: 57 Year
  Sex: Female

DRUGS (6)
  1. NOROXIN [Suspect]
     Indication: URINARY TRACT INFECTION
     Route: 048
     Dates: start: 20091001, end: 20091001
  2. PROPRANOLOL HYDROCHLORIDE [Concomitant]
     Route: 048
  3. FLUINDIONE [Suspect]
     Indication: AORTIC VALVE REPLACEMENT
     Route: 048
     Dates: start: 20070101, end: 20091001
  4. FLUINDIONE [Suspect]
     Route: 048
     Dates: start: 20070101, end: 20091001
  5. ASPIRIN LYSINE [Suspect]
     Indication: AORTIC VALVE REPLACEMENT
     Route: 048
     Dates: start: 20070101, end: 20091001
  6. CARBIMAZOLE [Suspect]
     Indication: HYPERTHYROIDISM
     Route: 048
     Dates: start: 20091016

REACTIONS (5)
  - DRUG INTERACTION [None]
  - HAEMORRHAGIC ANAEMIA [None]
  - INTERNATIONAL NORMALISED RATIO INCREASED [None]
  - PERITONEAL HAEMORRHAGE [None]
  - SHOCK HAEMORRHAGIC [None]
